FAERS Safety Report 4567027-0 (Version None)
Quarter: 2005Q1

REPORT INFORMATION
  Report Type: 
  Country: None (occurrence: None)
  Receive Date: 20050201
  Receipt Date: 20040831
  Transmission Date: 20050727
  Serious: Yes (Other)
  Sender: FDA-Public Use
  Company Number: US-BRISTOL-MYERS SQUIBB COMPANY-12688289

PATIENT
  Age: 41 Year
  Sex: Male
  Weight: 111 kg

DRUGS (4)
  1. STADOL [Suspect]
     Indication: MIGRAINE
     Dosage: DOSAGE: 1-2 SPRAYS MULTIPLE TIMES DAILY
     Route: 045
     Dates: start: 19960101, end: 20000101
  2. IMITREX [Concomitant]
  3. XANAX [Concomitant]
  4. VALIUM [Concomitant]

REACTIONS (1)
  - DEPENDENCE [None]
